FAERS Safety Report 6032008-7 (Version None)
Quarter: 2009Q1

REPORT INFORMATION
  Report Type: 
  Country: None (occurrence: None)
  Receive Date: 20090108
  Receipt Date: 20081226
  Transmission Date: 20090719
  Serious: Yes (Hospitalization, Other)
  Sender: FDA-Public Use
  Company Number: PHHY2008JP33251

PATIENT
  Sex: Female
  Weight: 45 kg

DRUGS (3)
  1. DIOVAN [Suspect]
     Indication: HYPERTENSION
     Dosage: 40 MG, QD
     Route: 048
     Dates: start: 20070912, end: 20071031
  2. ADALAT CC [Concomitant]
     Indication: HYPERTENSION
     Dosage: UNK
     Route: 048
     Dates: start: 20070831
  3. BASEN [Concomitant]
     Route: 048

REACTIONS (2)
  - HAEMODIALYSIS [None]
  - HYPERKALAEMIA [None]
